FAERS Safety Report 5392051-8 (Version None)
Quarter: 2007Q3

REPORT INFORMATION
  Report Type: 
  Country: None (occurrence: None)
  Receive Date: 20070718
  Receipt Date: 20070718
  Transmission Date: 20080115
  Serious: Yes (Hospitalization)
  Sender: FDA-Public Use
  Company Number: None

PATIENT
  Sex: Male
  Weight: 83.9154 kg

DRUGS (9)
  1. OXALIPLATIN [Suspect]
     Dosage: 40MG/M2 IV WEEKLY
     Route: 042
     Dates: start: 20070611
  2. OXALIPLATIN [Suspect]
     Dosage: 40MG/M2 IV WEEKLY
     Route: 042
     Dates: start: 20070510
  3. OXALIPLATIN [Suspect]
     Dosage: 40MG/M2 IV WEEKLY
     Route: 042
     Dates: start: 20070524
  4. LEUCOVORIN CALCIUM [Suspect]
     Dosage: 400MG/M2 IV BI-WEEKLY
     Route: 042
     Dates: start: 20070510
  5. LEUCOVORIN CALCIUM [Suspect]
     Dosage: 400MG/M2 IV BI-WEEKLY
     Route: 042
     Dates: start: 20070524
  6. FLUOROURACIL [Suspect]
     Dosage: 400MG/M2 IVP/200MG/M2
     Route: 042
  7. BEVACIZUMAB [Suspect]
     Dosage: 5MG/KG IV
     Route: 042
     Dates: start: 20070510
  8. BEVACIZUMAB [Suspect]
     Dosage: 5MG/KG IV
     Route: 042
     Dates: start: 20070524
  9. BEVACIZUMAB [Suspect]
     Dosage: 5MG/KG IV
     Route: 042
     Dates: start: 20070611

REACTIONS (9)
  - BLOOD PRESSURE INCREASED [None]
  - DEHYDRATION [None]
  - DIARRHOEA [None]
  - FATIGUE [None]
  - NAUSEA [None]
  - ORAL INTAKE REDUCED [None]
  - RECTAL HAEMORRHAGE [None]
  - VOMITING [None]
  - WEIGHT DECREASED [None]
